FAERS Safety Report 9458244 (Version 1)
Quarter: 2013Q3

REPORT INFORMATION
  Report Type: Spontaneous
  Country: DE (occurrence: None)
  Receive Date: 20130812
  Receipt Date: 20130812
  Transmission Date: 20140515
  Serious: Yes (Hospitalization, Other)
  Sender: FDA-Public Use
  Company Number: GER/GER/13/0033933

PATIENT
  Sex: Female
  Weight: 3.65 kg

DRUGS (1)
  1. SERTRALINE (SERTRALINE) [Suspect]
     Indication: PRODUCT USED FOR UNKNOWN INDICATION
     Dosage: 1 IN 1 D
     Route: 064

REACTIONS (4)
  - Agitation neonatal [None]
  - Foetal exposure during pregnancy [None]
  - Caesarean section [None]
  - Oxygen saturation decreased [None]
